FAERS Safety Report 5720331-2 (Version None)
Quarter: 2008Q2

REPORT INFORMATION
  Report Type: 
  Country: None (occurrence: None)
  Receive Date: 20080428
  Receipt Date: 20080417
  Transmission Date: 20081010
  Serious: Yes (Other)
  Sender: FDA-Public Use
  Company Number: NL-PFIZER INC-2008016016

PATIENT
  Sex: Male
  Weight: 93 kg

DRUGS (1)
  1. INSPRA [Suspect]
     Indication: CARDIAC FAILURE
     Route: 048
     Dates: start: 20070827, end: 20080128

REACTIONS (1)
  - ATRIAL FIBRILLATION [None]
